FAERS Safety Report 6549425-9 (Version None)
Quarter: 2010Q1

REPORT INFORMATION
  Report Type: 
  Country: None (occurrence: None)
  Receive Date: 20100125
  Receipt Date: 20100113
  Transmission Date: 20100710
  Serious: Yes (Hospitalization)
  Sender: FDA-Public Use
  Company Number: US-ELI_LILLY_AND_COMPANY-US201001002495

PATIENT
  Sex: Male
  Weight: 65.306 kg

DRUGS (9)
  1. PEMETREXED [Suspect]
     Indication: NON-SMALL CELL LUNG CANCER
     Dosage: 500 MG/M2, OTHER
     Route: 042
     Dates: start: 20091214, end: 20091214
  2. CARBOPLATIN [Suspect]
     Indication: NON-SMALL CELL LUNG CANCER
     Dosage: 6 D/F, OTHER
     Route: 042
     Dates: start: 20091214, end: 20091214
  3. BEVACIZUMAB [Suspect]
     Indication: NON-SMALL CELL LUNG CANCER
     Dosage: 15 MG/KG, OTHER
     Route: 042
     Dates: start: 20091214, end: 20091214
  4. NORCO [Concomitant]
     Indication: PAIN
     Dates: start: 20091113, end: 20091123
  5. SENOKOT [Concomitant]
     Indication: CONSTIPATION
     Dosage: UNK, 2/D
     Dates: start: 20091208
  6. ZOMETA [Concomitant]
     Indication: METASTASES TO BONE
     Dosage: UNK, UNK
     Dates: start: 20091204, end: 20100111
  7. VITAMIN B-12 [Concomitant]
     Indication: VITAMIN SUPPLEMENTATION
     Dosage: UNK, UNK
     Dates: start: 20091208, end: 20100111
  8. FOLIC ACID [Concomitant]
     Indication: VITAMIN SUPPLEMENTATION
     Dosage: 1 MG, DAILY (1/D)
     Route: 048
     Dates: start: 20091208
  9. DEXAMETHASONE [Concomitant]
     Dates: start: 20091213

REACTIONS (3)
  - BONE PAIN [None]
  - CONFUSIONAL STATE [None]
  - DEHYDRATION [None]
